FAERS Safety Report 4875508-5 (Version None)
Quarter: 2006Q1

REPORT INFORMATION
  Report Type: 
  Country: None (occurrence: None)
  Receive Date: 20060109
  Receipt Date: 20060104
  Transmission Date: 20060701
  Serious: Yes (Life-Threatening)
  Sender: FDA-Public Use
  Company Number: PHRM2006FR00447

PATIENT
  Age: 49 Year
  Sex: Male
  Weight: 52 kg

DRUGS (1)
  1. LEPONEX [Suspect]
     Indication: SCHIZOPHRENIA
     Dosage: 200MG, DAILY
     Route: 048
     Dates: start: 20051014

REACTIONS (4)
  - DOLICHOCOLON ACQUIRED [None]
  - INTESTINAL PERFORATION [None]
  - SHOCK HAEMORRHAGIC [None]
  - SURGERY [None]
